FAERS Safety Report 15196369 (Version 1)
Quarter: 2018Q3

REPORT INFORMATION
  Report Type: Report from Study
  Country: FR (occurrence: FR)
  Receive Date: 20180725
  Receipt Date: 20180725
  Transmission Date: 20181010
  Serious: Yes (Other)
  Sender: FDA-Public Use
  Company Number: FR-JNJFOC-20180723371

PATIENT
  Age: 7 Decade
  Sex: Female
  Weight: 70 kg

DRUGS (13)
  1. STELARA [Suspect]
     Active Substance: USTEKINUMAB
     Indication: PSORIASIS
     Route: 058
     Dates: start: 20160110, end: 20160210
  2. COAPROVEL [Concomitant]
     Active Substance: HYDROCHLOROTHIAZIDE\IRBESARTAN
     Route: 065
     Dates: start: 2004
  3. AMBROXOL [Concomitant]
     Active Substance: AMBROXOL
     Route: 065
     Dates: start: 20161117, end: 20161120
  4. ROVAMYCIN [Concomitant]
     Active Substance: SPIRAMYCIN
     Route: 065
     Dates: start: 20161120, end: 20161123
  5. STELARA [Suspect]
     Active Substance: USTEKINUMAB
     Indication: PSORIASIS
     Route: 058
     Dates: start: 20160210, end: 20160510
  6. NOOTROPYL [Concomitant]
     Active Substance: PIRACETAM
     Route: 065
  7. AUGMENTIN [Concomitant]
     Active Substance: AMOXICILLIN\CLAVULANATE POTASSIUM
     Route: 065
     Dates: start: 20161124, end: 20161124
  8. COSENTYX [Concomitant]
     Active Substance: SECUKINUMAB
     Route: 058
     Dates: start: 20161114, end: 20161126
  9. COSENTYX [Concomitant]
     Active Substance: SECUKINUMAB
     Route: 058
     Dates: start: 20170222
  10. SEBIPROX [Concomitant]
     Route: 065
     Dates: start: 2016
  11. BETASERC [Concomitant]
     Active Substance: BETAHISTINE
     Route: 065
  12. ESOMEPRAZOLE [Concomitant]
     Active Substance: ESOMEPRAZOLE
     Route: 065
  13. KARDEGIC [Concomitant]
     Active Substance: ASPIRIN DL-LYSINE
     Route: 065
     Dates: start: 2006

REACTIONS (1)
  - Keratoacanthoma [Recovered/Resolved]

NARRATIVE: CASE EVENT DATE: 201607
